FAERS Safety Report 6305753-3 (Version None)
Quarter: 2009Q3

REPORT INFORMATION
  Report Type: 
  Country: None (occurrence: None)
  Receive Date: 20090812
  Receipt Date: 20090803
  Transmission Date: 20100115
  Serious: Yes (Hospitalization)
  Sender: FDA-Public Use
  Company Number: US-BIOGENIDEC-2009BI019943

PATIENT
  Age: 49 Year
  Sex: Male
  Weight: 92 kg

DRUGS (6)
  1. AVONEX [Suspect]
     Indication: MULTIPLE SCLEROSIS
     Route: 030
     Dates: start: 20090426, end: 20090501
  2. AVONEX [Suspect]
     Route: 030
     Dates: start: 20090501, end: 20090501
  3. AVONEX [Suspect]
     Route: 030
     Dates: start: 20090501, end: 20090501
  4. AVONEX [Suspect]
     Route: 030
     Dates: start: 20090501, end: 20090630
  5. LASIX [Concomitant]
     Indication: SWELLING
  6. PREDNISONE [Concomitant]
     Indication: TRIGEMINAL NEURALGIA

REACTIONS (6)
  - BLOOD SODIUM DECREASED [None]
  - CHOLELITHIASIS [None]
  - CONSTIPATION [None]
  - DIARRHOEA [None]
  - NAUSEA [None]
  - VOMITING [None]
